FAERS Safety Report 7008648-5 (Version None)
Quarter: 2010Q3

REPORT INFORMATION
  Report Type: 
  Country: None (occurrence: None)
  Receive Date: 20100922
  Receipt Date: 20100913
  Transmission Date: 20110219
  Serious: Yes (Other)
  Sender: FDA-Public Use
  Company Number: US-ALLERGAN-1003921US

PATIENT
  Age: 31 Year
  Sex: Female
  Weight: 65.76 kg

DRUGS (1)
  1. BOTOX COSMETIC [Suspect]
     Indication: SKIN WRINKLING
     Dosage: 7 UNITS, SINGLE
     Route: 030
     Dates: start: 20090721, end: 20090721

REACTIONS (7)
  - DIZZINESS [None]
  - HEADACHE [None]
  - HYPOAESTHESIA FACIAL [None]
  - NASAL DISCOMFORT [None]
  - SINUS HEADACHE [None]
  - SINUSITIS [None]
  - VISION BLURRED [None]
